FAERS Safety Report 9436186 (Version 1)
Quarter: 2013Q3

REPORT INFORMATION
  Report Type: Spontaneous
  Country: US (occurrence: US)
  Receive Date: 20130801
  Receipt Date: 20130801
  Transmission Date: 20140515
  Serious: Yes (Other)
  Sender: FDA-Public Use
  Company Number: US-RB-056749-13

PATIENT
  Age: 26 Year
  Sex: Male

DRUGS (2)
  1. SUBOXONE FILM [Suspect]
     Dosage: SUBOXONE FILM
     Route: 060
     Dates: start: 2010
  2. SUBOXONE FILM [Suspect]
     Indication: DRUG DEPENDENCE
     Dosage: SUBOXONE FILM; TAKING VARIOUS DOSES, CUTTING FILM
     Route: 060
     Dates: start: 201305

REACTIONS (11)
  - Convulsion [Recovered/Resolved]
  - Somnolence [Recovered/Resolved]
  - Underdose [Recovered/Resolved]
  - Fatigue [Recovered/Resolved]
  - Irritability [Recovered/Resolved]
  - Feeling abnormal [Recovered/Resolved]
  - Wrong technique in drug usage process [Not Recovered/Not Resolved]
  - Sleep terror [Recovered/Resolved]
  - Underdose [Recovered/Resolved]
  - Emotional poverty [Not Recovered/Not Resolved]
  - Substance abuse [Not Recovered/Not Resolved]
